FAERS Safety Report 5476295-2 (Version None)
Quarter: 2007Q4

REPORT INFORMATION
  Report Type: 
  Country: None (occurrence: None)
  Receive Date: 20071003
  Receipt Date: 20070921
  Transmission Date: 20080405
  Serious: Yes (Other)
  Sender: FDA-Public Use
  Company Number: US-PFIZER INC-2005023614

PATIENT
  Sex: Female

DRUGS (5)
  1. CELEBREX [Suspect]
     Indication: ARTHRALGIA
     Route: 048
     Dates: start: 19910101, end: 20030101
  2. BEXTRA [Suspect]
     Indication: ARTHRALGIA
     Route: 065
     Dates: start: 20030623, end: 20040628
  3. ALL OTHER THERAPEUTIC PRODUCTS [Concomitant]
     Route: 065
  4. LASIX [Concomitant]
     Route: 048
  5. HYDROCHLOROTHIAZIDE [Concomitant]
     Route: 048

REACTIONS (25)
  - ABDOMINAL PAIN [None]
  - ACROCHORDON [None]
  - ALOPECIA [None]
  - ARTHRALGIA [None]
  - BLOOD ALDOSTERONE INCREASED [None]
  - BLOOD CORTISOL DECREASED [None]
  - CYSTITIS INTERSTITIAL [None]
  - DISTURBANCE IN ATTENTION [None]
  - DRUG INEFFECTIVE [None]
  - FEELING ABNORMAL [None]
  - FLUID RETENTION [None]
  - HYPERTENSION [None]
  - INSOMNIA [None]
  - PAIN [None]
  - PARAESTHESIA [None]
  - POLLAKIURIA [None]
  - PSORIASIS [None]
  - SCAR [None]
  - SKIN DISORDER [None]
  - STOMACH DISCOMFORT [None]
  - THYROID DISORDER [None]
  - UTERINE LEIOMYOMA [None]
  - VISION BLURRED [None]
  - WEIGHT DECREASED [None]
  - WEIGHT INCREASED [None]
